FAERS Safety Report 17225779 (Version 3)
Quarter: 2020Q1

REPORT INFORMATION
  Report Type: Report from Study
  Country: DE (occurrence: DE)
  Receive Date: 20200102
  Receipt Date: 20200204
  Transmission Date: 20200409
  Serious: Yes (Hospitalization, Other)
  Sender: FDA-Public Use
  Company Number: DE-MYLANLABS-2019M1131607

PATIENT
  Age: 26 Year
  Sex: Male
  Weight: 58 kg

DRUGS (11)
  1. SUBSTITOL [Suspect]
     Active Substance: MORPHINE SULFATE
     Dosage: 360 MILLIGRAM, QD
     Route: 048
     Dates: start: 20190913
  2. CLINDAMYCIN. [Concomitant]
     Active Substance: CLINDAMYCIN
     Indication: PRODUCT USED FOR UNKNOWN INDICATION
     Dosage: 900 MILLIGRAM
     Route: 065
     Dates: start: 20190918, end: 20190920
  3. SUBSTITOL [Suspect]
     Active Substance: MORPHINE SULFATE
     Dosage: 360 MG, QD
     Route: 048
     Dates: start: 20180831
  4. ECSTASY [Suspect]
     Active Substance: MIDOMAFETAMINE
     Indication: PRODUCT USED FOR UNKNOWN INDICATION
     Dosage: UNK
     Route: 065
  5. MAVYRET [Suspect]
     Active Substance: GLECAPREVIR\PIBRENTASVIR
     Indication: CHRONIC HEPATITIS C
     Dosage: 1 DOSAGE FORM, QD
     Route: 048
     Dates: start: 20190725
  6. QUETIAPINE. [Suspect]
     Active Substance: QUETIAPINE
     Indication: SCHIZOAFFECTIVE DISORDER
     Dosage: 1 OT, QD
     Route: 048
     Dates: start: 20180824
  7. PANTOPRAZOL                        /01263204/ [Concomitant]
     Active Substance: PANTOPRAZOLE SODIUM
     Indication: PRODUCT USED FOR UNKNOWN INDICATION
     Dosage: 20 MG
     Dates: start: 20190917, end: 20190920
  8. CLARITHROMYCIN. [Concomitant]
     Active Substance: CLARITHROMYCIN
     Indication: PRODUCT USED FOR UNKNOWN INDICATION
     Dosage: 1500 MG
     Dates: start: 20190917, end: 20190917
  9. MAVYRET [Suspect]
     Active Substance: GLECAPREVIR\PIBRENTASVIR
     Dosage: 3 DF, QD (100/40MG)
     Route: 048
     Dates: start: 20190725
  10. SUBSTITOL [Suspect]
     Active Substance: MORPHINE SULFATE
     Indication: PRODUCT USED FOR UNKNOWN INDICATION
     Dosage: 1 OT, QD
     Route: 048
     Dates: start: 20180831
  11. PROSPAN                            /00381502/ [Concomitant]
     Indication: PRODUCT USED FOR UNKNOWN INDICATION
     Dosage: 10 MILLIGRAM/COUGH LIQUID
     Route: 065
     Dates: start: 20190919, end: 20190924

REACTIONS (5)
  - Blood glucose increased [Unknown]
  - Vomiting [Unknown]
  - Poisoning [Not Recovered/Not Resolved]
  - Anamnestic reaction [Recovered/Resolved]
  - Agitation [Unknown]

NARRATIVE: CASE EVENT DATE: 20190913
